FAERS Safety Report 8897312 (Version 1)
Quarter: 2012Q4

REPORT INFORMATION
  Report Type: 
  Country: US (occurrence: US)
  Receive Date: 20121108
  Receipt Date: 20121108
  Transmission Date: 20130627
  Serious: No
  Sender: FDA-Public Use
  Company Number: US-AMGEN-USASP2012029130

PATIENT
  Age: 58 Year
  Sex: Female
  Weight: 77.1 kg

DRUGS (8)
  1. ENBREL [Suspect]
     Indication: PRODUCT USED FOR UNKNOWN INDICATION
     Dosage: 50 mg, qwk
     Route: 058
  2. METHOTREXATE [Concomitant]
     Dosage: 2.5 mg, UNK
  3. CALTRATE                           /00751519/ [Concomitant]
     Dosage: UNK
  4. LOVASTATIN [Concomitant]
     Dosage: 10 mg, UNK
  5. QUINAPRIL [Concomitant]
     Dosage: 5 mg, UNK
  6. IBUPROFEN [Concomitant]
     Dosage: 800 mg, UNK
  7. MULTIVITAMIN                       /00097801/ [Concomitant]
     Dosage: UNK
  8. FOLIC ACID [Concomitant]
     Dosage: 200 mug, UNK

REACTIONS (3)
  - Pyrexia [Unknown]
  - Injection site erythema [Unknown]
  - Injection site pruritus [Unknown]
